FAERS Safety Report 21168629 (Version 1)
Quarter: 2022Q3

REPORT INFORMATION
  Report Type: Spontaneous
  Country: US (occurrence: US)
  Receive Date: 20220803
  Receipt Date: 20220803
  Transmission Date: 20221027
  Serious: No
  Sender: FDA-Public Use
  Company Number: US-GALDERMA-US2022009028

PATIENT

DRUGS (2)
  1. DIFFERIN GEL [Suspect]
     Active Substance: ADAPALENE
     Indication: Acne
     Dosage: 1 DOSAGE FORM, QD, USE IT EVERY NIGHT BEFORE GO TO SLEEP
     Route: 061
     Dates: start: 2021
  2. DIFFERIN GEL [Suspect]
     Active Substance: ADAPALENE
     Indication: Skin wrinkling

REACTIONS (3)
  - Drug effective for unapproved indication [Recovered/Resolved]
  - Intentional product use issue [Recovered/Resolved]
  - Therapeutic response unexpected [Recovered/Resolved]
